FAERS Safety Report 11095371 (Version 1)
Quarter: 2015Q2

REPORT INFORMATION
  Report Type: Spontaneous
  Country: US (occurrence: US)
  Receive Date: 20150506
  Receipt Date: 20150506
  Transmission Date: 20150821
  Serious: Yes (Life-Threatening, Hospitalization, Other)
  Sender: FDA-Public Use
  Company Number: US-ASTRAZENECA-2015SE41485

PATIENT
  Age: 48 Year
  Sex: Female
  Weight: 95.3 kg

DRUGS (5)
  1. TEGRETOL [Suspect]
     Active Substance: CARBAMAZEPINE
     Dosage: UNKNOWN
     Route: 065
     Dates: start: 2004, end: 2004
  2. TRILEPTAL [Suspect]
     Active Substance: OXCARBAZEPINE
     Dosage: UNKNOWN
     Route: 065
     Dates: start: 201403
  3. SEROQUEL XR [Suspect]
     Active Substance: QUETIAPINE FUMARATE
     Indication: BIPOLAR DISORDER
     Route: 048
     Dates: start: 20150412
  4. SEROQUEL XR [Suspect]
     Active Substance: QUETIAPINE FUMARATE
     Indication: BIPOLAR DISORDER
     Route: 048
     Dates: start: 2002
  5. TRILEPTAL [Suspect]
     Active Substance: OXCARBAZEPINE
     Dosage: UNKNOWN
     Route: 065
     Dates: start: 2006, end: 2007

REACTIONS (11)
  - Chronic kidney disease [Unknown]
  - Asthenia [Recovered/Resolved]
  - Dry mouth [Unknown]
  - Acute kidney injury [Unknown]
  - Arterial haemorrhage [Recovered/Resolved]
  - Cataract [Unknown]
  - Dry eye [Unknown]
  - Procedural complication [Recovered/Resolved]
  - Rash pruritic [Recovered/Resolved]
  - Mania [Unknown]
  - Drug hypersensitivity [Recovered/Resolved]

NARRATIVE: CASE EVENT DATE: 2002
